FAERS Safety Report 10298277 (Version 1)
Quarter: 2014Q3

REPORT INFORMATION
  Report Type: Spontaneous
  Country: IT (occurrence: IT)
  Receive Date: 20140711
  Receipt Date: 20140711
  Transmission Date: 20150326
  Serious: Yes (Other)
  Sender: FDA-Public Use
  Company Number: IT-ACTAVIS-2014-15054

PATIENT
  Age: 66 Year
  Sex: Female
  Weight: 47 kg

DRUGS (2)
  1. FLUOROURACIL 5 FU [Suspect]
     Active Substance: FLUOROURACIL
     Indication: COLON CANCER
     Dosage: 3600 MG, CYCLICAL
     Route: 042
     Dates: start: 20131130, end: 20140520
  2. OXALIPLATIN (UNKNOWN) [Suspect]
     Active Substance: OXALIPLATIN
     Indication: COLON CANCER
     Dosage: 120 MG, CYCLICAL
     Route: 042
     Dates: start: 20131130, end: 20140520

REACTIONS (7)
  - Spinal compression fracture [Recovering/Resolving]
  - Sciatica [Recovering/Resolving]
  - Hypercreatininaemia [Recovering/Resolving]
  - Bone pain [Recovering/Resolving]
  - Paraesthesia [Recovering/Resolving]
  - Spinal column injury [Recovering/Resolving]
  - Productive cough [Recovering/Resolving]

NARRATIVE: CASE EVENT DATE: 20140115
